FAERS Safety Report 26088931 (Version 1)
Quarter: 2025Q4

REPORT INFORMATION
  Report Type: Spontaneous
  Country: JP (occurrence: JP)
  Receive Date: 20251125
  Receipt Date: 20251125
  Transmission Date: 20260118
  Serious: Yes (Death, Hospitalization)
  Sender: DAIICHI
  Company Number: JP-DSJP-DS-2025-178704-JP

PATIENT
  Age: 7 Decade
  Sex: Female

DRUGS (1)
  1. ENHERTU [Suspect]
     Active Substance: FAM-TRASTUZUMAB DERUXTECAN-NXKI
     Indication: Breast cancer
     Dosage: 5.4 MG/KG, ONCE EVERY 3 WK
     Route: 041

REACTIONS (2)
  - Interstitial lung disease [Recovered/Resolved]
  - Disease progression [Fatal]

NARRATIVE: CASE EVENT DATE: 20251009
